FAERS Safety Report 14151509 (Version 1)
Quarter: 2017Q4

REPORT INFORMATION
  Report Type: Spontaneous
  Country: US (occurrence: None)
  Receive Date: 20171101
  Receipt Date: 20171101
  Transmission Date: 20180321
  Serious: Yes (Hospitalization)
  Sender: FDA-Public Use
  Company Number: None

PATIENT
  Age: 86 Year
  Sex: Male

DRUGS (1)
  1. APIXABAN [Suspect]
     Active Substance: APIXABAN
     Indication: ATRIAL FIBRILLATION
     Route: 048
     Dates: start: 20160107, end: 20160622

REACTIONS (4)
  - Rectal haemorrhage [None]
  - Haematocrit decreased [None]
  - Rectal polyp [None]
  - Colitis ischaemic [None]

NARRATIVE: CASE EVENT DATE: 20160622
